FAERS Safety Report 4502339-8 (Version None)
Quarter: 2004Q4

REPORT INFORMATION
  Report Type: 
  Country: None (occurrence: None)
  Receive Date: 20041110
  Receipt Date: 20041028
  Transmission Date: 20050328
  Serious: Yes (Other)
  Sender: FDA-Public Use
  Company Number: K200401682

PATIENT
  Sex: Female

DRUGS (2)
  1. NORDETTE-21 [Suspect]
     Indication: ORAL CONTRACEPTION
     Dosage: 150UG/30UG
  2. LAMICTAL [Suspect]
     Dosage: 300 MG, QD

REACTIONS (8)
  - BLOOD FOLLICLE STIMULATING HORMONE INCREASED [None]
  - BLOOD LUTEINISING HORMONE INCREASED [None]
  - CONVULSION [None]
  - DRUG INTERACTION INHIBITION [None]
  - DRUG LEVEL DECREASED [None]
  - MENSTRUAL DISORDER [None]
  - OESTRADIOL INCREASED [None]
  - PREGNANCY [None]
